FAERS Safety Report 4429595-9 (Version None)
Quarter: 2004Q3

REPORT INFORMATION
  Report Type: 
  Country: None (occurrence: None)
  Receive Date: 20040816
  Receipt Date: 20040802
  Transmission Date: 20050211
  Serious: Yes (Death)
  Sender: FDA-Public Use
  Company Number: 2004AP03989

PATIENT
  Age: 30 Year
  Sex: Male

DRUGS (13)
  1. XYLOCAINE [Suspect]
     Indication: EPIDURAL ANAESTHESIA
     Dosage: 20 ML BID ED
     Route: 008
  2. XYLOCAINE [Suspect]
     Indication: LOCAL ANAESTHESIA
     Dosage: 20 ML BID ED
     Route: 008
  3. XYLOCAINE [Suspect]
     Indication: EPIDURAL ANAESTHESIA
     Dosage: 20 ML
  4. XYLOCAINE [Suspect]
     Indication: LOCAL ANAESTHESIA
     Dosage: 20 ML
  5. XYLOCAINE [Suspect]
     Indication: EPIDURAL ANAESTHESIA
     Dosage: 15 ML
  6. XYLOCAINE [Suspect]
     Indication: LOCAL ANAESTHESIA
     Dosage: 15 ML
  7. XYLOCAINE [Suspect]
     Indication: ANAESTHESIA
     Dosage: NI
     Route: 065
  8. NO MATCH [Concomitant]
  9. MUSCLE RELAXANT [Concomitant]
  10. SEDATIVE MEDICINE [Concomitant]
  11. SEDATIVE HYPNOTIC [Concomitant]
  12. GENERAL ANAESTHETICS [Concomitant]
  13. NO MATCH [Concomitant]

REACTIONS (5)
  - ANAESTHETIC COMPLICATION [None]
  - BLOOD PRESSURE INCREASED [None]
  - CARDIAC ARREST [None]
  - PO2 DECREASED [None]
  - VENTRICULAR FLUTTER [None]
